FAERS Safety Report 10661342 (Version 1)
Quarter: 2014Q4

REPORT INFORMATION
  Report Type: Spontaneous
  Country: TW (occurrence: TW)
  Receive Date: 20141218
  Receipt Date: 20141218
  Transmission Date: 20150529
  Serious: Yes (Hospitalization, Other)
  Sender: FDA-Public Use
  Company Number: TW-JNJFOC-20141204811

PATIENT
  Age: 77 Year
  Sex: Female

DRUGS (1)
  1. SIMPONI [Suspect]
     Active Substance: GOLIMUMAB
     Indication: RHEUMATOID ARTHRITIS
     Route: 058
     Dates: start: 20140521, end: 20141020

REACTIONS (6)
  - Cholelithiasis [Unknown]
  - Dyslipidaemia [Unknown]
  - Lung adenocarcinoma metastatic [Not Recovered/Not Resolved]
  - Cardiomegaly [Unknown]
  - Pericardial effusion [Unknown]
  - Arteriosclerosis coronary artery [Unknown]

NARRATIVE: CASE EVENT DATE: 20141112
